FAERS Safety Report 25402419 (Version 10)
Quarter: 2025Q3

REPORT INFORMATION
  Report Type: Report from Study
  Country: GB (occurrence: GB)
  Receive Date: 20250605
  Receipt Date: 20250903
  Transmission Date: 20251020
  Serious: Yes (Other)
  Sender: TAKEDA
  Company Number: GB-TAKEDA-2025TUS051059

PATIENT
  Sex: Male

DRUGS (9)
  1. HUMAN IMMUNOGLOBULIN G [Suspect]
     Active Substance: HUMAN IMMUNOGLOBULIN G
     Indication: Primary immunodeficiency syndrome
     Dosage: UNK UNK, 1/WEEK
     Dates: start: 202505
  2. HUMAN IMMUNOGLOBULIN G [Suspect]
     Active Substance: HUMAN IMMUNOGLOBULIN G
  3. HUMAN IMMUNOGLOBULIN G [Suspect]
     Active Substance: HUMAN IMMUNOGLOBULIN G
  4. HUMAN IMMUNOGLOBULIN G [Suspect]
     Active Substance: HUMAN IMMUNOGLOBULIN G
  5. HUMAN IMMUNOGLOBULIN G [Suspect]
     Active Substance: HUMAN IMMUNOGLOBULIN G
  6. HUMAN IMMUNOGLOBULIN G [Suspect]
     Active Substance: HUMAN IMMUNOGLOBULIN G
  7. HUMAN IMMUNOGLOBULIN G [Suspect]
     Active Substance: HUMAN IMMUNOGLOBULIN G
  8. HUMAN IMMUNOGLOBULIN G [Suspect]
     Active Substance: HUMAN IMMUNOGLOBULIN G
  9. DOXYCYCLINE [Suspect]
     Active Substance: DOXYCYCLINE
     Indication: Prophylaxis
     Dosage: 100 MILLIGRAM, QD

REACTIONS (18)
  - Lower respiratory tract infection [Unknown]
  - Fatigue [Recovering/Resolving]
  - Cough [Not Recovered/Not Resolved]
  - Blood pressure decreased [Recovering/Resolving]
  - Stress [Unknown]
  - Blood pressure abnormal [Unknown]
  - Heart rate abnormal [Unknown]
  - Respiration abnormal [Unknown]
  - Drug ineffective [Unknown]
  - Oxygen saturation decreased [Unknown]
  - Injection site pain [Unknown]
  - Infusion site erythema [Recovering/Resolving]
  - Body temperature increased [Unknown]
  - Asthenia [Unknown]
  - Malaise [Unknown]
  - Somnolence [Unknown]
  - Pyrexia [Unknown]
  - Infusion site swelling [Recovering/Resolving]
